FAERS Safety Report 10652885 (Version 1)
Quarter: 2014Q4

REPORT INFORMATION
  Report Type: Other
  Country: GB (occurrence: GB)
  Receive Date: 20141215
  Receipt Date: 20141215
  Transmission Date: 20150529
  Serious: Yes (Disabling, Other)
  Sender: FDA-Public Use
  Company Number: GB-MYLANLABS-2014M1012889

PATIENT

DRUGS (6)
  1. MIRTAZAPINE. [Suspect]
     Active Substance: MIRTAZAPINE
     Dosage: 15 MG, UNK
     Dates: start: 201306, end: 2013
  2. CHLORPROMAZINE [Suspect]
     Active Substance: CHLORPROMAZINE
     Dosage: UNK
  3. MIRTAZAPINE. [Suspect]
     Active Substance: MIRTAZAPINE
     Indication: ANXIETY
     Dosage: 45 MG, UNK
     Dates: start: 201308
  4. LORAZEPAM. [Suspect]
     Active Substance: LORAZEPAM
     Dosage: UNK
  5. MIRTAZAPINE. [Suspect]
     Active Substance: MIRTAZAPINE
     Indication: DEPRESSION
     Dosage: 30 MG, UNK
     Dates: start: 201307, end: 2013
  6. QUETIAPINE FUMARATE. [Concomitant]
     Active Substance: QUETIAPINE FUMARATE
     Dosage: UNK

REACTIONS (9)
  - General physical health deterioration [Unknown]
  - Agitation [Unknown]
  - Pain [Not Recovered/Not Resolved]
  - Panic reaction [Unknown]
  - Fear [Unknown]
  - Drug interaction [Not Recovered/Not Resolved]
  - Anxiety [Unknown]
  - Drug withdrawal syndrome [Not Recovered/Not Resolved]
  - Restlessness [Unknown]
